FAERS Safety Report 11417091 (Version 2)
Quarter: 2015Q3

REPORT INFORMATION
  Report Type: Report from Study
  Country: CH (occurrence: CH)
  Receive Date: 20150825
  Receipt Date: 20150902
  Transmission Date: 20151125
  Serious: Yes (Death)
  Sender: FDA-Public Use
  Company Number: CH-ABBVIE-15P-151-1451005-00

PATIENT
  Sex: Male

DRUGS (1)
  1. DUODOPA [Suspect]
     Active Substance: CARBIDOPA\LEVODOPA
     Indication: PARKINSON^S DISEASE
     Dosage: MD 12ML, CD 5.5ML/H,ED 2.5ML, 16TH THERAPY
     Route: 058
     Dates: start: 20130227

REACTIONS (1)
  - Death [Fatal]
